FAERS Safety Report 23573586 (Version 1)
Quarter: 2024Q1

REPORT INFORMATION
  Report Type: Spontaneous
  Country: US (occurrence: US)
  Receive Date: 20240228
  Receipt Date: 20240228
  Transmission Date: 20240410
  Serious: No
  Sender: FDA-Public Use
  Company Number: US-Bion-012645

PATIENT
  Sex: Female

DRUGS (1)
  1. IBUPROFEN [Suspect]
     Active Substance: IBUPROFEN
     Indication: Muscle spasms

REACTIONS (4)
  - Intentional product misuse [Unknown]
  - Burning sensation [Unknown]
  - Swollen tongue [Unknown]
  - Sensory loss [Unknown]
